FAERS Safety Report 4438996-4 (Version None)
Quarter: 2004Q3

REPORT INFORMATION
  Report Type: 
  Country: None (occurrence: None)
  Receive Date: 20040830
  Receipt Date: 20040823
  Transmission Date: 20050211
  Serious: Yes (Life-Threatening, Hospitalization)
  Sender: FDA-Public Use
  Company Number: 2004222127VE

PATIENT
  Sex: Female

DRUGS (2)
  1. DYNASTAT (PARECOXIB SODIUM) POWDER, STERILE [Suspect]
     Indication: TOOTHACHE
     Dosage: 40 MG, SINGLE, IV
     Route: 042
     Dates: start: 20040621, end: 20040621
  2. CELEBREX [Suspect]
     Indication: TOOTHACHE
     Dosage: 200 MG, SINGLE, ORAL
     Route: 048
     Dates: start: 20040621, end: 20040621

REACTIONS (15)
  - BRADYCARDIA [None]
  - DIZZINESS [None]
  - GALLBLADDER OEDEMA [None]
  - HAEMOGLOBIN DECREASED [None]
  - HEADACHE [None]
  - HEPATOMEGALY [None]
  - HYPERTENSION [None]
  - HYPOTENSION [None]
  - NAUSEA [None]
  - PARAESTHESIA [None]
  - PLEURAL EFFUSION [None]
  - SYNCOPE [None]
  - TACHYCARDIA [None]
  - TINNITUS [None]
  - TRANSAMINASES INCREASED [None]
